FAERS Safety Report 22190544 (Version 1)
Quarter: 2023Q2

REPORT INFORMATION
  Report Type: Spontaneous
  Country: FR (occurrence: FR)
  Receive Date: 20230410
  Receipt Date: 20230410
  Transmission Date: 20230721
  Serious: Yes (Other)
  Sender: FDA-Public Use
  Company Number: FR-SA-2023SA104331

PATIENT
  Age: 33 Year
  Sex: Female

DRUGS (13)
  1. RIFAMPIN [Suspect]
     Active Substance: RIFAMPIN
     Indication: Pulmonary tuberculosis
     Dosage: UNK
  2. RIFAMPIN [Suspect]
     Active Substance: RIFAMPIN
     Indication: Tuberculosis of central nervous system
  3. ISONIAZID [Suspect]
     Active Substance: ISONIAZID
     Indication: Pulmonary tuberculosis
     Dosage: UNK
  4. ISONIAZID [Suspect]
     Active Substance: ISONIAZID
     Indication: Tuberculosis of central nervous system
  5. PYRAZINAMIDE [Suspect]
     Active Substance: PYRAZINAMIDE
     Indication: Pulmonary tuberculosis
     Dosage: UNK
  6. PYRAZINAMIDE [Suspect]
     Active Substance: PYRAZINAMIDE
     Indication: Tuberculosis of central nervous system
  7. PREDNISOLONE [Suspect]
     Active Substance: PREDNISOLONE
     Indication: Pulmonary tuberculosis
     Dosage: 1 MG/KG, QD
  8. PREDNISOLONE [Suspect]
     Active Substance: PREDNISOLONE
     Indication: Tuberculosis of central nervous system
     Dosage: 0.75 MG/KG, QD
  9. PREDNISOLONE [Suspect]
     Active Substance: PREDNISOLONE
     Dosage: 1 MG/KG, QD
  10. PREDNISOLONE [Suspect]
     Active Substance: PREDNISOLONE
     Dosage: 0.75 MG/KG, QD
  11. PREDNISOLONE [Suspect]
     Active Substance: PREDNISOLONE
     Dosage: 0.25 MG/KG, QD
  12. PREDNISOLONE [Suspect]
     Active Substance: PREDNISOLONE
     Dosage: 1 MG/KG, QD
  13. PREDNISOLONE [Suspect]
     Active Substance: PREDNISOLONE
     Dosage: 5 MG, QD

REACTIONS (12)
  - Immune reconstitution inflammatory syndrome [Recovering/Resolving]
  - Hydrocephalus [Recovering/Resolving]
  - Central nervous system vasculitis [Recovering/Resolving]
  - Cognitive disorder [Recovering/Resolving]
  - Motor dysfunction [Recovering/Resolving]
  - Tuberculoma of central nervous system [Recovering/Resolving]
  - IIIrd nerve paresis [Not Recovered/Not Resolved]
  - Eyelid ptosis [Not Recovered/Not Resolved]
  - Paradoxical drug reaction [Recovering/Resolving]
  - Confusional state [Unknown]
  - Rebound effect [Unknown]
  - Monoparesis [Not Recovered/Not Resolved]
